FAERS Safety Report 9381396 (Version 1)
Quarter: 2013Q3

REPORT INFORMATION
  Report Type: Spontaneous
  Country: AR (occurrence: AR)
  Receive Date: 20130703
  Receipt Date: 20130703
  Transmission Date: 20140515
  Serious: Yes (Hospitalization, Other)
  Sender: FDA-Public Use
  Company Number: PHHY2013AR066794

PATIENT
  Sex: Female

DRUGS (3)
  1. SANDIMMUN [Suspect]
     Indication: LIVER TRANSPLANT
     Route: 048
     Dates: start: 2001
  2. NEORAL [Suspect]
     Indication: LIVER TRANSPLANT
     Route: 048
     Dates: start: 2001
  3. CERTICAN [Concomitant]
     Indication: LIVER TRANSPLANT
     Dosage: 6 DF, DAILY
     Route: 048
     Dates: start: 201305

REACTIONS (6)
  - Renal impairment [Recovering/Resolving]
  - Blood creatinine increased [Recovered/Resolved]
  - Arterial occlusive disease [Unknown]
  - Liver transplant rejection [Unknown]
  - Influenza [Unknown]
  - Pyrexia [Unknown]
